FAERS Safety Report 21879050 (Version 1)
Quarter: 2023Q1

REPORT INFORMATION
  Report Type: Spontaneous
  Country: US (occurrence: None)
  Receive Date: 20230117
  Receipt Date: 20230117
  Transmission Date: 20230418
  Serious: Yes (Other)
  Sender: FDA-Public Use
  Company Number: None

PATIENT
  Age: 71 Year
  Sex: Male

DRUGS (17)
  1. AMBRISENTAN [Suspect]
     Active Substance: AMBRISENTAN
     Indication: Pulmonary arterial hypertension
     Dosage: 10MG QD ORAL
     Route: 048
     Dates: start: 20220617
  2. SILDENAFIL [Concomitant]
     Active Substance: SILDENAFIL
  3. OMEPRAZOLE [Concomitant]
     Active Substance: OMEPRAZOLE
  4. VITAMIN D3 [Concomitant]
     Active Substance: CHOLECALCIFEROL
  5. SENNA [Concomitant]
     Active Substance: SENNA LEAF\SENNOSIDES\SENNOSIDES A AND B
  6. IBUPROFEN [Concomitant]
     Active Substance: IBUPROFEN
  7. ALBUTEROL SULFATE [Concomitant]
     Active Substance: ALBUTEROL SULFATE
  8. ATORVASTATIN [Concomitant]
     Active Substance: ATORVASTATIN
  9. FUROSEMIDE [Concomitant]
     Active Substance: FUROSEMIDE
  10. EPLERENONE [Concomitant]
     Active Substance: EPLERENONE
  11. FERROUS SULFATE [Concomitant]
     Active Substance: FERROUS SULFATE
  12. ASPIRIN [Concomitant]
     Active Substance: ASPIRIN
  13. IRON [Concomitant]
     Active Substance: IRON
  14. DEXTRAN [Concomitant]
     Active Substance: DEXTRAN
  15. VENOFER [Concomitant]
     Active Substance: IRON SUCROSE
  16. TYLENOL [Concomitant]
     Active Substance: ACETAMINOPHEN
  17. MEDROL [Concomitant]
     Active Substance: METHYLPREDNISOLONE

REACTIONS (3)
  - Haemoglobin decreased [None]
  - Dyspnoea [None]
  - Fatigue [None]

NARRATIVE: CASE EVENT DATE: 20230105
